FAERS Safety Report 7436378-4 (Version None)
Quarter: 2011Q2

REPORT INFORMATION
  Report Type: 
  Country: None (occurrence: None)
  Receive Date: 20110426
  Receipt Date: 20110418
  Transmission Date: 20111010
  Serious: No
  Sender: FDA-Public Use
  Company Number: US-BIOGENIDEC-2011BI008737

PATIENT
  Age: 58 Year
  Sex: Female

DRUGS (1)
  1. TYSABRI [Suspect]
     Indication: MULTIPLE SCLEROSIS
     Route: 042
     Dates: start: 20110221

REACTIONS (17)
  - EYE SWELLING [None]
  - DERMATITIS [None]
  - VOMITING [None]
  - PARAESTHESIA [None]
  - MASS [None]
  - OEDEMA PERIPHERAL [None]
  - PAIN [None]
  - GAIT DISTURBANCE [None]
  - BACK PAIN [None]
  - DYSKINESIA [None]
  - HYPERSOMNIA [None]
  - MUSCULAR WEAKNESS [None]
  - SPEECH DISORDER [None]
  - AMNESIA [None]
  - NAUSEA [None]
  - CONFUSIONAL STATE [None]
  - JOINT SWELLING [None]
